FAERS Safety Report 25625538 (Version 4)
Quarter: 2025Q4

REPORT INFORMATION
  Report Type: Spontaneous
  Country: JP (occurrence: JP)
  Receive Date: 20250731
  Receipt Date: 20251119
  Transmission Date: 20260118
  Serious: Yes (Death, Hospitalization, Other)
  Sender: GILEAD
  Company Number: JP-GILEAD-2025-0722514

PATIENT
  Age: 75 Year
  Sex: Female
  Weight: 48 kg

DRUGS (12)
  1. TRODELVY [Suspect]
     Active Substance: SACITUZUMAB GOVITECAN-HZIY
     Indication: Triple negative breast cancer
     Dosage: 525 MG
     Route: 042
     Dates: start: 20250205
  2. TRODELVY [Suspect]
     Active Substance: SACITUZUMAB GOVITECAN-HZIY
     Dosage: 379.5 MG
     Route: 042
     Dates: start: 20250326, end: 20250416
  3. PREDONINE [Suspect]
     Active Substance: PREDNISOLONE
     Indication: Nephritis
     Dosage: 5 MG, QD
     Route: 048
     Dates: start: 20250212
  4. PREDONINE [Suspect]
     Active Substance: PREDNISOLONE
     Dosage: REDUCED
     Route: 048
     Dates: end: 20250519
  5. CEFEPIME HYDROCHLORIDE [Suspect]
     Active Substance: CEFEPIME HYDROCHLORIDE
     Indication: Septic shock
     Dosage: UNK
     Route: 065
     Dates: start: 20250608, end: 20250608
  6. AMLODIPINE [Concomitant]
     Active Substance: AMLODIPINE BESYLATE
     Indication: Hypertension
     Dosage: 5 MG, QD
     Route: 048
  7. NEXIUM [Concomitant]
     Active Substance: ESOMEPRAZOLE MAGNESIUM
     Indication: Prophylaxis against gastrointestinal ulcer
     Dosage: 200 MG, QD
     Route: 048
     Dates: start: 20241206
  8. METHYLCOBALAMIN [Concomitant]
     Active Substance: METHYLCOBALAMIN
     Indication: Neuropathy peripheral
     Dosage: 500 UG, TID
     Route: 048
  9. LINAGLIPTIN [Concomitant]
     Active Substance: LINAGLIPTIN
     Indication: Hyperglycaemia
     Dosage: 5 MG, QD
     Route: 048
     Dates: start: 20250116
  10. SULFAMETHOXAZOLE\TRIMETHOPRIM [Concomitant]
     Active Substance: SULFAMETHOXAZOLE\TRIMETHOPRIM
     Indication: Opportunistic infection prophylaxis
     Dosage: 0.5 DOSAGE FORM, QD
     Route: 048
     Dates: start: 20241206
  11. PEGFILGRASTIM [Concomitant]
     Active Substance: PEGFILGRASTIM
     Dosage: UNK
     Dates: start: 20250326
  12. PEGFILGRASTIM [Concomitant]
     Active Substance: PEGFILGRASTIM
     Dosage: UNK
     Dates: start: 20250416

REACTIONS (11)
  - Disseminated intravascular coagulation [Fatal]
  - Septic shock [Fatal]
  - Pseudomembranous colitis [Fatal]
  - Pseudomembranous colitis [Recovered/Resolved with Sequelae]
  - Pseudomembranous colitis [Recovering/Resolving]
  - Febrile neutropenia [Recovered/Resolved]
  - Encephalopathy [Unknown]
  - Cardiac failure [Unknown]
  - Multiple organ dysfunction syndrome [Unknown]
  - Sepsis [Unknown]
  - Cytomegalovirus test positive [Recovering/Resolving]

NARRATIVE: CASE EVENT DATE: 20250218
